FAERS Safety Report 24114899 (Version 1)
Quarter: 2024Q3

REPORT INFORMATION
  Report Type: Spontaneous
  Country: US (occurrence: US)
  Receive Date: 20240721
  Receipt Date: 20240721
  Transmission Date: 20241016
  Serious: No
  Sender: NOVO NORDISK
  Company Number: US-NOVOPROD-1153352

PATIENT
  Age: 51 Year
  Sex: Female

DRUGS (4)
  1. WEGOVY [Suspect]
     Active Substance: SEMAGLUTIDE
     Dosage: 0.5 MG
     Route: 058
     Dates: start: 202312
  2. WEGOVY [Suspect]
     Active Substance: SEMAGLUTIDE
     Dosage: 1 MG
     Route: 058
  3. WEGOVY [Suspect]
     Active Substance: SEMAGLUTIDE
     Indication: Weight control
     Dosage: 0.25 MG - NO ISSUES, RASH ON THE 1.0 MG - PRESCRIBED
     Route: 058
     Dates: start: 202309, end: 202311
  4. DUPIXENT [Concomitant]
     Active Substance: DUPILUMAB
     Indication: Eosinophilic oesophagitis
     Dosage: UNK
     Route: 058
     Dates: start: 202308

REACTIONS (3)
  - Rash [Recovered/Resolved]
  - Injection site reaction [Unknown]
  - Off label use [Unknown]

NARRATIVE: CASE EVENT DATE: 20231101
